FAERS Safety Report 12945024 (Version 1)
Quarter: 2016Q4

REPORT INFORMATION
  Report Type: Report from Study
  Country: BR (occurrence: BR)
  Receive Date: 20161115
  Receipt Date: 20161115
  Transmission Date: 20170207
  Serious: Yes (Other)
  Sender: FDA-Public Use
  Company Number: PHHY2016BR141801

PATIENT
  Sex: Male
  Weight: 64 kg

DRUGS (2)
  1. EXJADE [Suspect]
     Active Substance: DEFERASIROX
     Indication: ANAEMIA
     Dosage: 2 DF OF 500 MG, QD (1000 MG)
     Route: 048
     Dates: end: 2015
  2. NORIPURUM [Concomitant]
     Active Substance: IRON POLYMALTOSE
     Indication: PRODUCT USED FOR UNKNOWN INDICATION
     Route: 065

REACTIONS (4)
  - Blood iron decreased [Unknown]
  - Weight decreased [Unknown]
  - Pneumonia [Unknown]
  - Serum ferritin decreased [Unknown]
